FAERS Safety Report 25331020 (Version 2)
Quarter: 2025Q2

REPORT INFORMATION
  Report Type: Spontaneous
  Country: US (occurrence: US)
  Receive Date: 20250519
  Receipt Date: 20250528
  Transmission Date: 20250717
  Serious: Yes (Hospitalization, Other)
  Sender: ALKEM
  Company Number: None

PATIENT
  Age: 16 Year
  Sex: Female

DRUGS (19)
  1. DEXTROAMPHETAMINE SACCHARATE, AMPHETAMINE ASPARTATE, DEXTROAMPHETAMINE [Suspect]
     Active Substance: AMPHETAMINE ASPARTATE\AMPHETAMINE SULFATE\DEXTROAMPHETAMINE SACCHARATE\DEXTROAMPHETAMINE SULFATE
     Indication: Anxiolytic therapy
     Dosage: 5 MILLIGRAM, QD (IMMEDIATE RELEASE)
     Route: 048
  2. DEXTROAMPHETAMINE SACCHARATE, AMPHETAMINE ASPARTATE, DEXTROAMPHETAMINE [Suspect]
     Active Substance: AMPHETAMINE ASPARTATE\AMPHETAMINE SULFATE\DEXTROAMPHETAMINE SACCHARATE\DEXTROAMPHETAMINE SULFATE
     Dosage: 15 MILLIGRAM, QD (EXTENDED RELEASE)
     Route: 048
  3. ARIPIPRAZOLE [Suspect]
     Active Substance: ARIPIPRAZOLE
     Indication: Major depression
     Dosage: 20 MILLIGRAM, QD
     Route: 048
  4. ARIPIPRAZOLE [Suspect]
     Active Substance: ARIPIPRAZOLE
     Indication: Antipsychotic therapy
  5. DULOXETINE [Suspect]
     Active Substance: DULOXETINE
     Indication: Antipsychotic therapy
     Dosage: 60 MILLIGRAM, QD
     Route: 048
  6. METHYLPHENIDATE HYDROCHLORIDE [Suspect]
     Active Substance: METHYLPHENIDATE HYDROCHLORIDE
     Indication: Anxiolytic therapy
     Route: 048
  7. METHYLPHENIDATE HYDROCHLORIDE [Suspect]
     Active Substance: METHYLPHENIDATE HYDROCHLORIDE
     Dosage: 10 MILLIGRAM, QD
     Route: 048
  8. OLANZAPINE [Suspect]
     Active Substance: OLANZAPINE
     Indication: Antipsychotic therapy
     Route: 048
  9. OLANZAPINE [Suspect]
     Active Substance: OLANZAPINE
     Indication: Major depression
     Route: 048
  10. QUETIAPINE FUMARATE [Suspect]
     Active Substance: QUETIAPINE FUMARATE
     Indication: Major depression
     Dosage: 50 MILLIGRAM, BID (40 PILLS)
     Route: 048
  11. QUETIAPINE FUMARATE [Suspect]
     Active Substance: QUETIAPINE FUMARATE
     Indication: Antidepressant therapy
     Dosage: 150 MILLIGRAM, BID
     Route: 048
  12. QUETIAPINE FUMARATE [Suspect]
     Active Substance: QUETIAPINE FUMARATE
     Dosage: 200 MILLIGRAM, BID
     Route: 048
  13. QUETIAPINE FUMARATE [Suspect]
     Active Substance: QUETIAPINE FUMARATE
     Route: 048
  14. QUETIAPINE FUMARATE [Suspect]
     Active Substance: QUETIAPINE FUMARATE
     Route: 048
  15. ESCITALOPRAM [Suspect]
     Active Substance: ESCITALOPRAM OXALATE
     Indication: Major depression
     Dosage: 20 MILLIGRAM, QD
     Route: 048
  16. LISINOPRIL [Suspect]
     Active Substance: LISINOPRIL
     Indication: Product used for unknown indication
     Route: 065
  17. BUPROPION [Suspect]
     Active Substance: BUPROPION
     Indication: Major depression
     Route: 048
  18. BUPROPION [Suspect]
     Active Substance: BUPROPION
     Indication: Antidepressant therapy
     Dosage: 300 MILLIGRAM, QD (EXTENDED RELEASE)
     Route: 048
  19. BUPROPION [Suspect]
     Active Substance: BUPROPION
     Dosage: 100 MILLIGRAM, BID (SUSTAINED RELEASE)
     Route: 048

REACTIONS (12)
  - Mental impairment [Unknown]
  - Suicide attempt [Unknown]
  - Hyperprolactinaemia [Unknown]
  - Overdose [Unknown]
  - Intentional overdose [Unknown]
  - Galactorrhoea [Unknown]
  - Gait disturbance [Unknown]
  - Vomiting [Unknown]
  - Akathisia [Unknown]
  - Vision blurred [Unknown]
  - Headache [Unknown]
  - Drug ineffective [Unknown]
